FAERS Safety Report 13839654 (Version 1)
Quarter: 2017Q3

REPORT INFORMATION
  Report Type: Spontaneous
  Country: FR (occurrence: FR)
  Receive Date: 20170807
  Receipt Date: 20170807
  Transmission Date: 20171127
  Serious: Yes (Death)
  Sender: FDA-Public Use
  Company Number: FR-SA-2017SA141763

PATIENT
  Age: 68 Year
  Sex: Male

DRUGS (6)
  1. SPECIAFOLDINE [Concomitant]
     Active Substance: FOLIC ACID
  2. PREVISCAN [Suspect]
     Active Substance: FLUINDIONE
     Indication: ATRIAL FIBRILLATION
     Route: 048
     Dates: end: 20170713
  3. SOTALOL. [Concomitant]
     Active Substance: SOTALOL
  4. FABRAZYME [Suspect]
     Active Substance: AGALSIDASE BETA
     Indication: FABRY^S DISEASE
     Route: 041
     Dates: start: 20170713, end: 20170713
  5. TRIATEC [Concomitant]
     Active Substance: RAMIPRIL
  6. TAHOR [Concomitant]
     Active Substance: ATORVASTATIN CALCIUM

REACTIONS (1)
  - Cerebral haemorrhage [Fatal]

NARRATIVE: CASE EVENT DATE: 20170713
